FAERS Safety Report 14092638 (Version 1)
Quarter: 2017Q4

REPORT INFORMATION
  Report Type: Spontaneous
  Country: US (occurrence: US)
  Receive Date: 20171016
  Receipt Date: 20171016
  Transmission Date: 20180321
  Serious: No
  Sender: FDA-Public Use
  Company Number: US-BRISTOL-MYERS SQUIBB COMPANY-BMS-2017-092312

PATIENT
  Age: 78 Year
  Sex: Male
  Weight: 140 kg

DRUGS (1)
  1. OPDIVO [Suspect]
     Active Substance: NIVOLUMAB
     Indication: NON-SMALL CELL LUNG CANCER
     Dosage: UNK UNK, Q2WK
     Route: 042
     Dates: start: 20171011

REACTIONS (9)
  - Tremor [Unknown]
  - Vision blurred [Unknown]
  - Decreased appetite [Unknown]
  - Dyspnoea [Unknown]
  - Influenza [Unknown]
  - Weight increased [Unknown]
  - Disorientation [Unknown]
  - Diarrhoea [Unknown]
  - Nasopharyngitis [Unknown]

NARRATIVE: CASE EVENT DATE: 20171011
